FAERS Safety Report 18561115 (Version 2)
Quarter: 2020Q4

REPORT INFORMATION
  Report Type: Spontaneous
  Country: US (occurrence: US)
  Receive Date: 20201130
  Receipt Date: 20201210
  Transmission Date: 20210114
  Serious: No
  Sender: FDA-Public Use
  Company Number: US-IGSA-BIG0012199

PATIENT
  Age: 19 Year
  Sex: Male
  Weight: 50.6 kg

DRUGS (17)
  1. BENADRYL [Concomitant]
     Active Substance: DIPHENHYDRAMINE HYDROCHLORIDE
     Indication: PREMEDICATION
     Dosage: 25 MILLIGRAM
     Route: 048
     Dates: start: 20200828
  2. HYDRALAZINE [Concomitant]
     Active Substance: HYDRALAZINE HYDROCHLORIDE
  3. FERROUS SULFATE. [Concomitant]
     Active Substance: FERROUS SULFATE
  4. PROPRANOLOL [Concomitant]
     Active Substance: PROPRANOLOL HYDROCHLORIDE
  5. GAMUNEX-C [Suspect]
     Active Substance: HUMAN IMMUNOGLOBULIN G
     Dosage: 45 GRAM, Q.3WK.
     Route: 042
  6. CLONIDINE. [Concomitant]
     Active Substance: CLONIDINE
  7. PREDNISOLONE. [Concomitant]
     Active Substance: PREDNISOLONE
  8. ATOVAQUONE. [Concomitant]
     Active Substance: ATOVAQUONE
  9. OXCARBAZEPINE. [Concomitant]
     Active Substance: OXCARBAZEPINE
  10. SODIUM POLYSTYRENE SULFONATE. [Concomitant]
     Active Substance: SODIUM POLYSTYRENE SULFONATE
  11. KATERZIA [Concomitant]
     Active Substance: AMLODIPINE BENZOATE
  12. GAMUNEX-C [Suspect]
     Active Substance: HUMAN IMMUNOGLOBULIN G
     Indication: IMMUNE SYSTEM DISORDER
     Dosage: 40 GRAM, TOTAL
     Route: 042
     Dates: start: 20200828, end: 20200828
  13. NIFEDIPINE. [Concomitant]
     Active Substance: NIFEDIPINE
  14. DIAZEPAM. [Concomitant]
     Active Substance: DIAZEPAM
  15. SODIUM CITRATE DIHYDRATE [Concomitant]
     Active Substance: TRISODIUM CITRATE DIHYDRATE
  16. NEXIUM I.V. [Concomitant]
     Active Substance: ESOMEPRAZOLE SODIUM
  17. MOMETASONE FUROATE. [Concomitant]
     Active Substance: MOMETASONE FUROATE

REACTIONS (2)
  - Pruritus [Recovered/Resolved]
  - Urticaria [Recovered/Resolved]

NARRATIVE: CASE EVENT DATE: 20200828
